FAERS Safety Report 16985551 (Version 2)
Quarter: 2020Q1

REPORT INFORMATION
  Report Type: Spontaneous
  Country: US (occurrence: US)
  Receive Date: 20191101
  Receipt Date: 20200121
  Transmission Date: 20200409
  Serious: No
  Sender: FDA-Public Use
  Company Number: US-SA-2019SA297947

PATIENT
  Age: 59 Year
  Sex: Male
  Weight: 71.65 kg

DRUGS (1)
  1. DUPIXENT [Suspect]
     Active Substance: DUPILUMAB
     Indication: ASTHMA
     Dosage: 300 MG, QOW
     Route: 058
     Dates: start: 20190424

REACTIONS (7)
  - Pyrexia [Unknown]
  - Nasopharyngitis [Unknown]
  - Malaise [Unknown]
  - Joint swelling [Unknown]
  - Arthralgia [Unknown]
  - Rhinorrhoea [Unknown]
  - Chills [Unknown]

NARRATIVE: CASE EVENT DATE: 20200108
